FAERS Safety Report 23661869 (Version 2)
Quarter: 2024Q1

REPORT INFORMATION
  Report Type: Spontaneous
  Country: JP (occurrence: JP)
  Receive Date: 20240322
  Receipt Date: 20240329
  Transmission Date: 20240410
  Serious: Yes (Other)
  Sender: FDA-Public Use
  Company Number: JP-GLAXOSMITHKLINE-JP2024JPN035479

PATIENT

DRUGS (3)
  1. FLOLAN [Suspect]
     Active Substance: EPOPROSTENOL SODIUM
     Indication: Pulmonary arterial hypertension
     Dosage: RAPID DOSE ESCALATION, DOSE INCREASE TO 40 NG/KG/MIN, CONTINUOUS INTRAVENOUS INFUSION
  2. FLOLAN [Suspect]
     Active Substance: EPOPROSTENOL SODIUM
     Dosage: 20 NG/KG/MIN
  3. NITRIC OXIDE [Concomitant]
     Active Substance: NITRIC OXIDE
     Dosage: UNK

REACTIONS (4)
  - Cerebral haemorrhage [Unknown]
  - Epilepsy [Unknown]
  - Quadriparesis [Unknown]
  - Product use issue [Unknown]
